FAERS Safety Report 4777910-9 (Version None)
Quarter: 2005Q3

REPORT INFORMATION
  Report Type: 
  Country: None (occurrence: None)
  Receive Date: 20050921
  Receipt Date: 20050913
  Transmission Date: 20060218
  Serious: Yes (Life-Threatening)
  Sender: FDA-Public Use
  Company Number: 2005JP001690

PATIENT
  Age: 56 Year
  Sex: Female
  Weight: 59.1 kg

DRUGS (12)
  1. TACROLIMUS [Suspect]
     Indication: RHEUMATOID ARTHRITIS
     Dosage: SEE IMAGE
     Route: 048
     Dates: start: 20050617, end: 20050101
  2. TACROLIMUS [Suspect]
     Indication: RHEUMATOID ARTHRITIS
     Dosage: SEE IMAGE
     Route: 048
     Dates: start: 20050520, end: 20050602
  3. TACROLIMUS [Suspect]
     Indication: RHEUMATOID ARTHRITIS
     Dosage: SEE IMAGE
     Route: 048
     Dates: start: 20050630, end: 20050616
  4. PREDNISOLONE [Concomitant]
  5. VOLTAREN [Concomitant]
  6. ACTONEL (RISDRONATE SODIUM) TABLET [Concomitant]
  7. PREDOHAN                 (PREDNISOLONE) [Concomitant]
  8. MEVALOTIN (PRVASTATIN SODIUM) [Concomitant]
  9. LANSOPRAZOLE [Concomitant]
  10. SELBEX                (TEPRENONE) [Concomitant]
  11. ANPLAG (SARPOGRELATE HYDROCHLORIDE) [Concomitant]
  12. ACTOS [Concomitant]

REACTIONS (1)
  - SUBARACHNOID HAEMORRHAGE [None]
